FAERS Safety Report 11719753 (Version 2)
Quarter: 2015Q4

REPORT INFORMATION
  Report Type: Spontaneous
  Country: US (occurrence: US)
  Receive Date: 20151110
  Receipt Date: 20151119
  Transmission Date: 20160304
  Serious: Yes (Life-Threatening, Hospitalization)
  Sender: FDA-Public Use
  Company Number: US-SA-2015SA179642

PATIENT
  Age: 61 Year
  Sex: Male

DRUGS (6)
  1. CISPLATIN. [Concomitant]
     Active Substance: CISPLATIN
     Indication: METASTASES TO LUNG
  2. 5-FU [Concomitant]
     Active Substance: FLUOROURACIL
     Indication: METASTASES TO LUNG
  3. DOCETAXEL. [Suspect]
     Active Substance: DOCETAXEL
     Indication: GLOTTIS CARCINOMA
     Dosage: CYCLES 1-3
     Route: 065
  4. CISPLATIN. [Concomitant]
     Active Substance: CISPLATIN
     Indication: GLOTTIS CARCINOMA
  5. 5-FU [Concomitant]
     Active Substance: FLUOROURACIL
     Indication: GLOTTIS CARCINOMA
  6. DOCETAXEL. [Suspect]
     Active Substance: DOCETAXEL
     Indication: METASTASES TO LUNG
     Dosage: CYCLES 1-3
     Route: 065

REACTIONS (8)
  - Traumatic lung injury [Recovered/Resolved]
  - Chest X-ray abnormal [Recovered/Resolved]
  - Respiratory alkalosis [Recovered/Resolved]
  - Hypoxia [Recovered/Resolved]
  - Lung infiltration [Recovered/Resolved]
  - Tachycardia [Recovered/Resolved]
  - Oxygen saturation decreased [Recovered/Resolved]
  - Breath sounds abnormal [Recovered/Resolved]
